FAERS Safety Report 17236783 (Version 1)
Quarter: 2020Q1

REPORT INFORMATION
  Report Type: Spontaneous
  Country: US (occurrence: US)
  Receive Date: 20200106
  Receipt Date: 20200106
  Transmission Date: 20200409
  Serious: No
  Sender: FDA-Public Use
  Company Number: US-BAYER-2019-238339

PATIENT
  Age: 72 Year
  Sex: Female

DRUGS (11)
  1. CLARITIN [Suspect]
     Active Substance: LORATADINE
     Indication: ASTHMA
  2. YEAST [Concomitant]
     Active Substance: YEAST
  3. GREEN TEA EXTRACT [CAMELLIA SINENSIS] [Concomitant]
  4. TUMS [CALCIUM CARBONATE;MAGNESIUM CARBONATE] [Concomitant]
  5. POTASSIUM [Concomitant]
     Active Substance: POTASSIUM
  6. CLARITIN [Suspect]
     Active Substance: LORATADINE
     Indication: NASOPHARYNGITIS
     Dosage: 2 DF, ONCE
     Dates: start: 20191229, end: 20191229
  7. BUMETANIDE. [Concomitant]
     Active Substance: BUMETANIDE
  8. VITAMIN D3 [Concomitant]
     Active Substance: CHOLECALCIFEROL
  9. OXYCODONE [Concomitant]
     Active Substance: OXYCODONE
  10. CLARITIN [Suspect]
     Active Substance: LORATADINE
     Indication: ALLERGIC RESPIRATORY SYMPTOM
     Dosage: 1 DF, QD
     Route: 048
  11. FISH OIL [Concomitant]
     Active Substance: FISH OIL

REACTIONS (1)
  - Extra dose administered [Recovered/Resolved]

NARRATIVE: CASE EVENT DATE: 20191229
